FAERS Safety Report 20110105 (Version 1)
Quarter: 2021Q4

REPORT INFORMATION
  Report Type: Spontaneous
  Country: US (occurrence: None)
  Receive Date: 20211124
  Receipt Date: 20211124
  Transmission Date: 20220303
  Serious: No
  Sender: FDA-Public Use
  Company Number: None

PATIENT

DRUGS (2)
  1. EZETIMIBE [Suspect]
     Active Substance: EZETIMIBE
  2. ESZOPICLONE [Suspect]
     Active Substance: ESZOPICLONE

REACTIONS (4)
  - Transcription medication error [None]
  - Intercepted product dispensing error [None]
  - Product name confusion [None]
  - Product name confusion [None]
